FAERS Safety Report 7783035-0 (Version None)
Quarter: 2011Q3

REPORT INFORMATION
  Report Type: 
  Country: None (occurrence: None)
  Receive Date: 20110928
  Receipt Date: 20110923
  Transmission Date: 20111222
  Serious: No
  Sender: FDA-Public Use
  Company Number: US-PFIZER INC-2011227155

PATIENT
  Age: 79 Year

DRUGS (1)
  1. PREMARIN [Suspect]
     Dosage: UNK
     Dates: start: 19710101

REACTIONS (1)
  - HOT FLUSH [None]
